FAERS Safety Report 8006823-4 (Version None)
Quarter: 2011Q4

REPORT INFORMATION
  Report Type: 
  Country: None (occurrence: None)
  Receive Date: 20111227
  Receipt Date: 20111221
  Transmission Date: 20120403
  Serious: Yes (Death, Hospitalization)
  Sender: FDA-Public Use
  Company Number: DE-JNJFOC-20111210098

PATIENT
  Sex: Female

DRUGS (10)
  1. ZYPREXA [Concomitant]
     Route: 065
  2. ABILIFY [Concomitant]
     Route: 065
     Dates: start: 20110519, end: 20110524
  3. HALDOL [Suspect]
     Indication: BIPOLAR I DISORDER
     Route: 065
  4. LITHIUM CARBONATE [Concomitant]
     Route: 065
  5. SOLIAN [Concomitant]
     Route: 065
  6. LORAZEPAM [Concomitant]
     Route: 065
  7. AKINETON [Concomitant]
     Route: 065
  8. HALDOL [Suspect]
     Dosage: 5MG-5MG-5MG
     Route: 065
     Dates: end: 20110610
  9. LITHIUM CARBONATE [Concomitant]
     Route: 065
  10. DIAZEPAM [Concomitant]
     Route: 065

REACTIONS (7)
  - COMA [None]
  - NEUROLEPTIC MALIGNANT SYNDROME [None]
  - IRRITABILITY [None]
  - FATIGUE [None]
  - PULMONARY EMBOLISM [None]
  - STATUS EPILEPTICUS [None]
  - BIPOLAR DISORDER [None]
